FAERS Safety Report 10874467 (Version 7)
Quarter: 2015Q3

REPORT INFORMATION
  Report Type: Report from Study
  Country: SE (occurrence: SE)
  Receive Date: 20150227
  Receipt Date: 20150908
  Transmission Date: 20151125
  Serious: Yes (Death, Life-Threatening, Hospitalization, Disabling, Other)
  Sender: FDA-Public Use
  Company Number: SE-TAKEDA-2014JNJ006550

PATIENT

DRUGS (6)
  1. VELCADE [Suspect]
     Active Substance: BORTEZOMIB
     Dosage: 1.8 MG, UNK
     Route: 058
     Dates: start: 20141229
  2. DARATUMUMAB [Suspect]
     Active Substance: DARATUMUMAB
     Indication: PLASMA CELL MYELOMA
     Dosage: 1120 MG, UNK
     Route: 042
     Dates: start: 20141209
  3. DARATUMUMAB [Suspect]
     Active Substance: DARATUMUMAB
     Dosage: 1120 MG, UNK
     Route: 042
     Dates: start: 20141229
  4. VELCADE [Suspect]
     Active Substance: BORTEZOMIB
     Indication: PLASMA CELL MYELOMA
     Dosage: 2.3 MG, UNK
     Route: 058
     Dates: start: 20141209
  5. DEXAMETHASONE. [Suspect]
     Active Substance: DEXAMETHASONE
     Indication: PLASMA CELL MYELOMA
     Dosage: 20 MG, UNK
     Route: 048
     Dates: start: 20141209
  6. DEXAMETHASONE. [Suspect]
     Active Substance: DEXAMETHASONE
     Dosage: 20 MG, UNK
     Route: 048
     Dates: start: 20141229

REACTIONS (5)
  - Hydrothorax [Fatal]
  - Pneumonia [Fatal]
  - Humerus fracture [Recovered/Resolved]
  - Bone pain [Recovered/Resolved]
  - Haemoglobin decreased [Not Recovered/Not Resolved]

NARRATIVE: CASE EVENT DATE: 20141212
